FAERS Safety Report 19138224 (Version 1)
Quarter: 2021Q2

REPORT INFORMATION
  Report Type: Spontaneous
  Country: IE (occurrence: IE)
  Receive Date: 20210415
  Receipt Date: 20210415
  Transmission Date: 20210717
  Serious: Yes (Hospitalization)
  Sender: FDA-Public Use
  Company Number: IE-AMGEN-IRLSP2021057435

PATIENT
  Age: 54 Year
  Sex: Female

DRUGS (1)
  1. ENBREL [Suspect]
     Active Substance: ETANERCEPT
     Indication: PRODUCT USED FOR UNKNOWN INDICATION
     Dosage: UNK
     Route: 065

REACTIONS (5)
  - Arthritis [Unknown]
  - Asthenia [Unknown]
  - Fatigue [Unknown]
  - COVID-19 [Unknown]
  - Pain [Unknown]
